FAERS Safety Report 12888814 (Version 1)
Quarter: 2016Q4

REPORT INFORMATION
  Report Type: Report from Study
  Country: US (occurrence: US)
  Receive Date: 20161027
  Receipt Date: 20161027
  Transmission Date: 20170207
  Serious: Yes (Death, Other)
  Sender: FDA-Public Use
  Company Number: US-ROCHE-1845090

PATIENT

DRUGS (5)
  1. PREDNISONE. [Suspect]
     Active Substance: PREDNISONE
     Indication: IMMUNOSUPPRESSION
     Route: 065
  2. CYCLOSPORINE. [Suspect]
     Active Substance: CYCLOSPORINE
     Indication: IMMUNOSUPPRESSION
     Route: 065
  3. DACLIZUMAB [Suspect]
     Active Substance: DACLIZUMAB
     Indication: RENAL TRANSPLANT
     Route: 065
  4. TACROLIMUS. [Suspect]
     Active Substance: TACROLIMUS
     Indication: IMMUNOSUPPRESSION
     Route: 065
  5. MYCOPHENOLATE MOFETIL. [Suspect]
     Active Substance: MYCOPHENOLATE MOFETIL
     Indication: IMMUNOSUPPRESSION
     Route: 065

REACTIONS (18)
  - Pneumocystis jirovecii pneumonia [Unknown]
  - Urinary tract infection [Unknown]
  - Osteonecrosis [Unknown]
  - Mucormycosis [Fatal]
  - Endocarditis bacterial [Fatal]
  - Pneumonia bacterial [Unknown]
  - Skin infection [Unknown]
  - Hypertension [Unknown]
  - Varicella [Unknown]
  - Diabetes mellitus [Unknown]
  - Herpes zoster [Unknown]
  - Skin papilloma [Unknown]
  - Cataract [Unknown]
  - Arm amputation [Unknown]
  - Post transplant lymphoproliferative disorder [Unknown]
  - Hepatoblastoma [Unknown]
  - Cytomegalovirus infection [Unknown]
  - Hypercholesterolaemia [Unknown]
